FAERS Safety Report 5134375-5 (Version None)
Quarter: 2006Q4

REPORT INFORMATION
  Report Type: 
  Country: None (occurrence: None)
  Receive Date: 20061019
  Receipt Date: 20061004
  Transmission Date: 20070319
  Serious: Yes (Death, Hospitalization)
  Sender: FDA-Public Use
  Company Number: REM_00277_2006

PATIENT
  Age: 63 Year
  Sex: Female
  Weight: 74 kg

DRUGS (11)
  1. REMODULIN [Suspect]
     Indication: PULMONARY HYPERTENSION
     Dosage: 48 NG/KG/MIN CONTINUOUS IV
     Route: 042
     Dates: start: 20051108, end: 20060315
  2. SILDENAFIL [Concomitant]
  3. NPH INSULIN [Concomitant]
  4. ALDACTONE [Concomitant]
  5. FUROSEMIDE [Concomitant]
  6. PANTOPRAZOLE SODIUM [Concomitant]
  7. PROPRANOLOL [Concomitant]
  8. PROCRIT [Concomitant]
  9. FERROUS SULFATE TAB [Concomitant]
  10. CALCITONIN-SALMON [Concomitant]
  11. CALCIUM CARBONATE [Concomitant]

REACTIONS (7)
  - CATHETER RELATED INFECTION [None]
  - FATIGUE [None]
  - HYPOTENSION [None]
  - NAUSEA [None]
  - PANCYTOPENIA [None]
  - RENAL TUBULAR NECROSIS [None]
  - STREPTOCOCCAL BACTERAEMIA [None]
